FAERS Safety Report 18258483 (Version 1)
Quarter: 2020Q3

REPORT INFORMATION
  Report Type: Other
  Country: US (occurrence: US)
  Receive Date: 20200911
  Receipt Date: 20200911
  Transmission Date: 20201103
  Serious: No
  Sender: FDA-Public Use
  Company Number: US-LEADIANT BIOSCIENCES INC-2020STPI000069

PATIENT
  Sex: Male

DRUGS (4)
  1. MIRALAX [Concomitant]
     Active Substance: POLYETHYLENE GLYCOL 3350
  2. MATULANE [Suspect]
     Active Substance: PROCARBAZINE HYDROCHLORIDE
     Indication: BRAIN NEOPLASM MALIGNANT
     Dosage: 50 MG, 2 CAPSULES QD FOR THE FIRST 10 DAYS, THEN 3 CAPSULES PO FOR 4 DAYS.
     Route: 048
     Dates: start: 20191213
  3. FAMOTIDINE. [Concomitant]
     Active Substance: FAMOTIDINE
  4. DOCUSATE SOD [Concomitant]

REACTIONS (2)
  - Nail discolouration [Unknown]
  - Paraesthesia [Unknown]

NARRATIVE: CASE EVENT DATE: 2020
